FAERS Safety Report 8558997-4 (Version None)
Quarter: 2012Q3

REPORT INFORMATION
  Report Type: 
  Country: None (occurrence: None)
  Receive Date: 20120802
  Receipt Date: 20120723
  Transmission Date: 20120928
  Serious: Yes (Hospitalization)
  Sender: FDA-Public Use
  Company Number: US-BIOGENIDEC-2012BI020748

PATIENT
  Age: 48 Year
  Sex: Female

DRUGS (7)
  1. TYSABRI [Suspect]
     Route: 042
     Dates: start: 20080423, end: 20081210
  2. TYSABRI [Suspect]
     Route: 042
     Dates: start: 20111116
  3. TYSABRI [Suspect]
     Route: 042
     Dates: start: 20120101
  4. TYSABRI [Suspect]
     Indication: MULTIPLE SCLEROSIS
     Route: 042
     Dates: start: 20050203
  5. TYSABRI [Suspect]
     Route: 042
     Dates: start: 20090625, end: 20091104
  6. TYSABRI [Suspect]
     Route: 042
     Dates: start: 20070212, end: 20070601
  7. AVONEX [Concomitant]
     Indication: MULTIPLE SCLEROSIS
     Route: 030
     Dates: start: 20010426

REACTIONS (4)
  - CYSTITIS ESCHERICHIA [None]
  - BLADDER DIVERTICULUM [None]
  - ESCHERICHIA URINARY TRACT INFECTION [None]
  - UHTHOFF'S PHENOMENON [None]
